FAERS Safety Report 17531697 (Version 1)
Quarter: 2020Q1

REPORT INFORMATION
  Report Type: Report from Study
  Country: CO (occurrence: CO)
  Receive Date: 20200312
  Receipt Date: 20200312
  Transmission Date: 20200409
  Serious: Yes (Hospitalization)
  Sender: FDA-Public Use
  Company Number: CO-ROCHE-2499574

PATIENT
  Sex: Female

DRUGS (1)
  1. XELODA [Suspect]
     Active Substance: CAPECITABINE
     Indication: PRODUCT USED FOR UNKNOWN INDICATION
     Route: 048

REACTIONS (11)
  - Malaise [Unknown]
  - Abdominal distension [Unknown]
  - Vomiting [Unknown]
  - Blood sodium decreased [Unknown]
  - Immunodeficiency [Unknown]
  - Dysstasia [Unknown]
  - Blood potassium decreased [Unknown]
  - Feeling abnormal [Unknown]
  - Asthenia [Unknown]
  - Anaemia [Unknown]
  - Paracentesis [Unknown]
